FAERS Safety Report 7769055-0 (Version None)
Quarter: 2011Q3

REPORT INFORMATION
  Report Type: 
  Country: None (occurrence: None)
  Receive Date: 20110922
  Receipt Date: 20100105
  Transmission Date: 20111222
  Serious: No
  Sender: FDA-Public Use
  Company Number: US-ASTRAZENECA-2007UW01964

PATIENT
  Age: 44 Year
  Sex: Female
  Weight: 90.7 kg

DRUGS (28)
  1. SILTUSSIN [Concomitant]
  2. ABILIFY [Concomitant]
     Dates: start: 20050428
  3. GEODON [Concomitant]
     Dates: start: 20060811
  4. THORAZINE [Concomitant]
     Dates: start: 19710101
  5. FERROUS SULFATE TAB [Concomitant]
     Dates: start: 20000912
  6. APAP TAB [Concomitant]
  7. FLOVENT [Concomitant]
  8. PENICILLIN VK [Concomitant]
  9. LAMICTAL [Concomitant]
  10. SEROQUEL [Suspect]
     Indication: SLEEP DISORDER
     Dosage: 25 MG TO 300 MG
     Route: 048
     Dates: start: 20001020, end: 20060713
  11. LORAZEPAM [Concomitant]
     Dates: start: 20001011
  12. IBUPROFEN [Concomitant]
     Dates: start: 20001103
  13. SEROQUEL [Suspect]
     Dosage: 25 TO 100 MG
     Route: 048
     Dates: start: 20001020
  14. ZYPREXA [Concomitant]
     Dosage: 2.5 MG TO 10 MG
     Dates: start: 20000119, end: 20001011
  15. ZYPREXA [Concomitant]
     Dates: start: 20001011
  16. ATIVAN [Concomitant]
  17. ZITHROMAX [Concomitant]
  18. QUINAPRIL HCL [Concomitant]
  19. FLUOXETINE [Concomitant]
  20. ALBUTEROL [Concomitant]
     Dates: start: 20000830
  21. EFFEXOR XR [Concomitant]
     Dates: start: 20001011
  22. NYSTATIN [Concomitant]
  23. CLONAZEPAM [Concomitant]
  24. PROZAC [Concomitant]
     Dates: start: 20001011
  25. NASONEX [Concomitant]
  26. HALDOL [Concomitant]
     Dates: start: 20060731
  27. SINGULAIR [Concomitant]
  28. ACTOS [Concomitant]

REACTIONS (4)
  - PALPITATIONS [None]
  - TYPE 2 DIABETES MELLITUS [None]
  - OBESITY [None]
  - BLOOD CHOLESTEROL INCREASED [None]
